FAERS Safety Report 24745974 (Version 1)
Quarter: 2024Q4

REPORT INFORMATION
  Report Type: Spontaneous
  Country: JP (occurrence: JP)
  Receive Date: 20241218
  Receipt Date: 20241218
  Transmission Date: 20250114
  Serious: Yes (Other)
  Sender: ASTELLAS
  Company Number: JP-ASTELLAS-2024JP005396

PATIENT
  Age: 56 Year
  Sex: Female

DRUGS (15)
  1. VYLOY [Suspect]
     Active Substance: ZOLBETUXIMAB-CLZB
     Indication: Gastric cancer
     Dosage: THE FIRST TIME:?800MG X BODY SURFACE AREA 1.4?ADMINISTRATION RATE: 70 ML/H --} 140 ML/H --} 280 ML/H
     Route: 042
     Dates: start: 20240724, end: 20240724
  2. VYLOY [Suspect]
     Active Substance: ZOLBETUXIMAB-CLZB
     Dosage: THE SECOND TIME:?600MG X BODY SURFACE AREA 1.4?ADMINISTRATION RATE: 53 ML/H --} 210 ML/H (MAXIMUM AD
     Route: 042
     Dates: start: 20240828, end: 20240925
  3. CAPECITABINE [Suspect]
     Active Substance: CAPECITABINE
     Indication: Gastric cancer
     Dosage: DAILY DOSE: AS IN THE ZOLBETUXIMAB (GENETICAL RECOMBINATION) CLINICAL TRIAL
     Route: 048
     Dates: start: 20240724, end: 20240925
  4. OXALIPLATIN [Suspect]
     Active Substance: OXALIPLATIN
     Indication: Gastric cancer
     Dosage: DAILY DOSE: AS IN THE ZOLBETUXIMAB (GENETICAL RECOMBINATION) CLINICAL TRIAL
     Route: 042
     Dates: start: 20240724
  5. OXALIPLATIN [Suspect]
     Active Substance: OXALIPLATIN
     Dosage: DAILY DOSE: AS IN THE ZOLBETUXIMAB (GENETICAL RECOMBINATION) CLINICAL TRIAL
     Route: 042
     Dates: end: 20240925
  6. NIVOLUMAB [Suspect]
     Active Substance: NIVOLUMAB
     Indication: Gastric cancer
     Route: 042
  7. GIMERACIL\OTERACIL\TEGAFUR [Concomitant]
     Active Substance: GIMERACIL\OTERACIL POTASSIUM\TEGAFUR
     Indication: Product used for unknown indication
     Route: 065
  8. PALONOSETRON [Concomitant]
     Active Substance: PALONOSETRON
     Indication: Prophylaxis of nausea and vomiting
     Route: 065
  9. FOSNETUPITANT CHLORIDE HYDROCHLORIDE [Concomitant]
     Active Substance: FOSNETUPITANT CHLORIDE HYDROCHLORIDE
     Indication: Prophylaxis of nausea and vomiting
     Route: 065
  10. DEXA [Concomitant]
     Indication: Prophylaxis of nausea and vomiting
     Route: 065
  11. POLARAMINE [Concomitant]
     Active Substance: DEXCHLORPHENIRAMINE MALEATE
     Indication: Prophylaxis of nausea and vomiting
     Route: 065
  12. OLANZAPINE [Concomitant]
     Active Substance: OLANZAPINE
     Indication: Nausea
     Route: 065
     Dates: start: 20240724
  13. NOVAMIN [Concomitant]
     Indication: Decreased appetite
     Route: 065
  14. FLUOROURACIL [Concomitant]
     Active Substance: FLUOROURACIL
     Indication: Product used for unknown indication
     Route: 065
  15. LEVOFOLINATE CALCIUM Hydrate [Concomitant]
     Indication: Product used for unknown indication
     Route: 065

REACTIONS (8)
  - Adrenal insufficiency [Recovered/Resolved]
  - Condition aggravated [Recovered/Resolved]
  - Malignant neoplasm progression [Unknown]
  - Nausea [Recovered/Resolved]
  - Decreased appetite [Recovered/Resolved]
  - Decreased appetite [Recovered/Resolved]
  - Blood cholesterol decreased [Recovered/Resolved]
  - Nausea [Recovered/Resolved]

NARRATIVE: CASE EVENT DATE: 20240724
